FAERS Safety Report 11749898 (Version 2)
Quarter: 2016Q1

REPORT INFORMATION
  Report Type: Spontaneous
  Country: US (occurrence: US)
  Receive Date: 20151118
  Receipt Date: 20160104
  Transmission Date: 20160525
  Serious: Yes (Hospitalization, Other)
  Sender: FDA-Public Use
  Company Number: US-PFIZER INC-2015380308

PATIENT
  Age: 84 Year
  Sex: Male
  Weight: 97.96 kg

DRUGS (3)
  1. IBRANCE [Suspect]
     Active Substance: PALBOCICLIB
     Indication: BREAST CANCER MALE
     Dosage: 125 MG, CYCLIC (DAY1-21Q 28 DAYS)
     Route: 048
     Dates: start: 20151012
  2. IBRANCE [Suspect]
     Active Substance: PALBOCICLIB
     Dosage: 125 MG, CYCLIC (DAY1-21Q 28 DAYS)
     Route: 048
     Dates: end: 2015
  3. IBRANCE [Suspect]
     Active Substance: PALBOCICLIB
     Dosage: 75 MG, CYCLIC (DAY1-21Q 28 DAYS)
     Route: 048
     Dates: start: 2015

REACTIONS (4)
  - Malaise [Unknown]
  - White blood cell count decreased [Unknown]
  - Hypotension [Unknown]
  - Product use issue [Unknown]

NARRATIVE: CASE EVENT DATE: 2015
